FAERS Safety Report 15538755 (Version 3)
Quarter: 2021Q1

REPORT INFORMATION
  Report Type: Spontaneous
  Country: US (occurrence: US)
  Receive Date: 20181022
  Receipt Date: 20210113
  Transmission Date: 20210419
  Serious: Yes (Other)
  Sender: FDA-Public Use
  Company Number: US-SA-2018SA291012

PATIENT
  Age: 40 Year
  Sex: Female
  Weight: 77 kg

DRUGS (47)
  1. TAXOTERE [Suspect]
     Active Substance: DOCETAXEL
     Indication: BREAST CANCER FEMALE
     Dosage: 135 MG, Q3W
     Route: 042
     Dates: start: 20100221, end: 20100222
  2. TAXOTERE [Suspect]
     Active Substance: DOCETAXEL
     Dosage: 135 MG, Q3W
     Route: 042
     Dates: start: 20100315, end: 20100315
  3. PARAPLATIN [Concomitant]
     Active Substance: CARBOPLATIN
     Dosage: 625 MG, UNK
     Route: 042
     Dates: start: 20100405, end: 20100405
  4. DECADRON [Concomitant]
     Active Substance: DEXAMETHASONE
     Dosage: 12 MG, UNK
     Route: 042
     Dates: start: 20100517, end: 20100517
  5. BENADRYL [Concomitant]
     Active Substance: DIPHENHYDRAMINE HYDROCHLORIDE
     Dosage: 50 MG, UNK
     Route: 042
     Dates: start: 20100517, end: 20100517
  6. HERCEPTIN [Concomitant]
     Active Substance: TRASTUZUMAB
     Dosage: 460 MG, UNK
     Route: 042
     Dates: start: 20100607, end: 20100607
  7. PARAPLATIN [Concomitant]
     Active Substance: CARBOPLATIN
     Dosage: 625 MG, UNK
     Route: 042
     Dates: start: 20100607, end: 20100607
  8. DECADRON [Concomitant]
     Active Substance: DEXAMETHASONE
     Dosage: 12 MG, UNK
     Route: 042
     Dates: start: 20100222, end: 20100222
  9. NEULASTA [Concomitant]
     Active Substance: PEGFILGRASTIM
     Dosage: 6 MG, UNK
     Route: 058
     Dates: start: 20100406
  10. TAXOL [Concomitant]
     Active Substance: PACLITAXEL
     Indication: BREAST CANCER FEMALE
     Dosage: UNK
     Route: 065
  11. BENADRYL [Concomitant]
     Active Substance: DIPHENHYDRAMINE HYDROCHLORIDE
     Dosage: 50 MG, UNK
     Route: 042
     Dates: start: 20100222, end: 20100222
  12. BENADRYL [Concomitant]
     Active Substance: DIPHENHYDRAMINE HYDROCHLORIDE
     Dosage: 50 MG, UNK
     Route: 042
     Dates: start: 20100315, end: 20100315
  13. BENADRYL [Concomitant]
     Active Substance: DIPHENHYDRAMINE HYDROCHLORIDE
     Dosage: 50 MG, UNK
     Route: 042
     Dates: start: 20100607, end: 20100607
  14. HERCEPTIN [Concomitant]
     Active Substance: TRASTUZUMAB
     Dosage: 460 MG, UNK
     Route: 042
     Dates: start: 20100426, end: 20100426
  15. NEULASTA [Concomitant]
     Active Substance: PEGFILGRASTIM
     Dosage: 6 MG, UNK
     Route: 058
     Dates: start: 20100427
  16. TAXOTERE [Suspect]
     Active Substance: DOCETAXEL
     Dosage: 135 MG, Q3W
     Dates: start: 20100426, end: 20100426
  17. TAXOTERE [Suspect]
     Active Substance: DOCETAXEL
     Dosage: 135 MG, Q3W
     Route: 042
     Dates: start: 20100607, end: 20100607
  18. DECADRON [Concomitant]
     Active Substance: DEXAMETHASONE
     Dosage: 12 MG, UNK
     Route: 042
     Dates: start: 20100426, end: 20100426
  19. ACETAMINOPHEN. [Concomitant]
     Active Substance: ACETAMINOPHEN
     Dosage: 650 MG, UNK
     Route: 048
     Dates: start: 20100607
  20. BENADRYL [Concomitant]
     Active Substance: DIPHENHYDRAMINE HYDROCHLORIDE
     Dosage: 50 MG, UNK
     Route: 042
     Dates: start: 20100405, end: 20100405
  21. BENADRYL [Concomitant]
     Active Substance: DIPHENHYDRAMINE HYDROCHLORIDE
     Dosage: 50 MG, UNK
     Route: 042
     Dates: start: 20100426, end: 20100426
  22. HERCEPTIN [Concomitant]
     Active Substance: TRASTUZUMAB
     Dosage: 600 MG, UNK
     Route: 042
     Dates: start: 20100222, end: 20100222
  23. ALOXI [Concomitant]
     Active Substance: PALONOSETRON HYDROCHLORIDE
     Dosage: 0.25 MG, UNK
     Route: 042
     Dates: start: 20100426, end: 20100426
  24. ALOXI [Concomitant]
     Active Substance: PALONOSETRON HYDROCHLORIDE
     Dosage: 0.25 MG, UNK
     Route: 042
     Dates: start: 20100607, end: 20100607
  25. ACETAMINOPHEN. [Concomitant]
     Active Substance: ACETAMINOPHEN
     Dosage: 650 MG, UNK
     Route: 048
     Dates: start: 20100315
  26. ACETAMINOPHEN. [Concomitant]
     Active Substance: ACETAMINOPHEN
     Dosage: 650 MG, UNK
     Route: 048
     Dates: start: 20100405
  27. ACETAMINOPHEN. [Concomitant]
     Active Substance: ACETAMINOPHEN
     Dosage: 650 MG, UNK
     Route: 048
     Dates: start: 20100426
  28. HERCEPTIN [Concomitant]
     Active Substance: TRASTUZUMAB
     Dosage: 460 MG, UNK
     Route: 042
     Dates: start: 20100405, end: 20100405
  29. NEULASTA [Concomitant]
     Active Substance: PEGFILGRASTIM
     Dosage: 6 MG, UNK
     Route: 058
     Dates: start: 20100316
  30. PARAPLATIN [Concomitant]
     Active Substance: CARBOPLATIN
     Dosage: 625 MG, UNK
     Route: 042
     Dates: start: 20100315, end: 20100315
  31. PARAPLATIN [Concomitant]
     Active Substance: CARBOPLATIN
     Dosage: 625 MG, UNK
     Route: 042
     Dates: start: 20100426, end: 20100426
  32. ALOXI [Concomitant]
     Active Substance: PALONOSETRON HYDROCHLORIDE
     Dosage: 0.25 MG, UNK
     Route: 042
     Dates: start: 20100405, end: 20100405
  33. DECADRON [Concomitant]
     Active Substance: DEXAMETHASONE
     Dosage: 12 MG, UNK
     Route: 042
     Dates: start: 20100315, end: 20100315
  34. HERCEPTIN [Concomitant]
     Active Substance: TRASTUZUMAB
     Dosage: 600 MG, UNK
     Route: 042
     Dates: start: 20100315, end: 20100315
  35. TAXOTERE [Suspect]
     Active Substance: DOCETAXEL
     Dosage: 135 MG, Q3W
     Route: 042
     Dates: start: 20100405, end: 20100405
  36. ALOXI [Concomitant]
     Active Substance: PALONOSETRON HYDROCHLORIDE
     Dosage: 0.25 MG, UNK
     Route: 042
     Dates: start: 20100222, end: 20100222
  37. ALOXI [Concomitant]
     Active Substance: PALONOSETRON HYDROCHLORIDE
     Dosage: 0.25 MG, UNK
     Route: 042
     Dates: start: 20100517, end: 20100517
  38. ACETAMINOPHEN. [Concomitant]
     Active Substance: ACETAMINOPHEN
     Dosage: 650 MG, UNK
     Route: 048
     Dates: start: 20100222
  39. HERCEPTIN [Concomitant]
     Active Substance: TRASTUZUMAB
     Dosage: 460 MG, UNK
     Route: 042
     Dates: start: 20100517, end: 20100517
  40. TAXOTERE [Suspect]
     Active Substance: DOCETAXEL
     Dosage: 135 MG, Q3W
     Dates: start: 20100517, end: 20100517
  41. PARAPLATIN [Concomitant]
     Active Substance: CARBOPLATIN
     Indication: BREAST CANCER FEMALE
     Dosage: 625 MG, UNK
     Route: 042
     Dates: start: 20100222, end: 20100222
  42. PARAPLATIN [Concomitant]
     Active Substance: CARBOPLATIN
     Dosage: 625 MG, UNK
     Route: 042
     Dates: start: 20100517, end: 20100517
  43. ALOXI [Concomitant]
     Active Substance: PALONOSETRON HYDROCHLORIDE
     Dosage: 0.25 MG, UNK
     Route: 042
     Dates: start: 20100315, end: 20100315
  44. DECADRON [Concomitant]
     Active Substance: DEXAMETHASONE
     Dosage: 12 MG, UNK
     Route: 042
     Dates: start: 20100405, end: 20100405
  45. DECADRON [Concomitant]
     Active Substance: DEXAMETHASONE
     Dosage: 12 MG, UNK
     Route: 042
     Dates: start: 20100607, end: 20100607
  46. ACETAMINOPHEN. [Concomitant]
     Active Substance: ACETAMINOPHEN
     Dosage: 650 MG, UNK
     Route: 048
     Dates: start: 20100517
  47. NEULASTA [Concomitant]
     Active Substance: PEGFILGRASTIM
     Dosage: 6 MG, UNK
     Route: 058
     Dates: start: 20100608

REACTIONS (3)
  - Emotional distress [Unknown]
  - Alopecia [Recovering/Resolving]
  - Psychological trauma [Unknown]
